FAERS Safety Report 7204464-X (Version None)
Quarter: 2010Q4

REPORT INFORMATION
  Report Type: 
  Country: None (occurrence: None)
  Receive Date: 20101230
  Receipt Date: 20101203
  Transmission Date: 20110411
  Serious: Yes (Other)
  Sender: FDA-Public Use
  Company Number: JP-BRISTOL-MYERS SQUIBB COMPANY-15446511

PATIENT
  Age: 6 Decade
  Sex: Female

DRUGS (2)
  1. BARACLUDE [Suspect]
     Indication: HEPATITIS B
     Route: 048
     Dates: start: 20100401, end: 20101201
  2. TEGAFUR + GIMERACIL + OTERACIL POTASSIUM [Suspect]
     Indication: HEPATITIS B
     Dosage: 13AUG10-ONG
     Route: 048
     Dates: start: 20100813

REACTIONS (1)
  - HEPATIC STEATOSIS [None]
